FAERS Safety Report 12390653 (Version 1)
Quarter: 2016Q2

REPORT INFORMATION
  Report Type: Spontaneous
  Country: BR (occurrence: BR)
  Receive Date: 20160520
  Receipt Date: 20160520
  Transmission Date: 20160815
  Serious: Yes (Hospitalization, Congenital Anomaly)
  Sender: FDA-Public Use
  Company Number: BR-FRESENIUS KABI-FK201602787

PATIENT
  Sex: Male

DRUGS (4)
  1. MISOPROSTOL. [Suspect]
     Active Substance: MISOPROSTOL
     Route: 067
  2. VALPROATE [Suspect]
     Active Substance: VALPROIC ACID
     Indication: PETIT MAL EPILEPSY
     Route: 065
  3. MISOPROSTOL. [Suspect]
     Active Substance: MISOPROSTOL
     Indication: ABORTION INDUCED
     Route: 048
  4. CARBAMAZEPINE. [Suspect]
     Active Substance: CARBAMAZEPINE
     Indication: PETIT MAL EPILEPSY
     Route: 065

REACTIONS (3)
  - Congenital cystic lung [Unknown]
  - Foetal exposure during pregnancy [Unknown]
  - Meningocele [Unknown]
